FAERS Safety Report 13366524 (Version 3)
Quarter: 2017Q2

REPORT INFORMATION
  Report Type: Spontaneous
  Country: US (occurrence: US)
  Receive Date: 20170323
  Receipt Date: 20170614
  Transmission Date: 20170830
  Serious: Yes (Death, Other)
  Sender: FDA-Public Use
  Company Number: US-BAUSCH-BL-2017-007420

PATIENT
  Age: 70 Year
  Sex: Male
  Weight: 63.56 kg

DRUGS (10)
  1. XIFAXAN [Suspect]
     Active Substance: RIFAXIMIN
     Indication: LIVER DISORDER
  2. OXYCODONE [Concomitant]
     Active Substance: OXYCODONE
     Indication: PAIN
  3. FUROSEMIDE. [Concomitant]
     Active Substance: FUROSEMIDE
     Indication: FLUID IMBALANCE
  4. TIZANIDINE. [Concomitant]
     Active Substance: TIZANIDINE
     Indication: HYPOTONIA
  5. SODIUM [Concomitant]
     Active Substance: SODIUM
     Indication: SLEEP DISORDER
  6. XIFAXAN [Suspect]
     Active Substance: RIFAXIMIN
     Indication: CONFUSIONAL STATE
  7. SPIRONOLACTONE. [Concomitant]
     Active Substance: SPIRONOLACTONE
     Indication: PRODUCT USED FOR UNKNOWN INDICATION
  8. TAMSULOSIN [Concomitant]
     Active Substance: TAMSULOSIN
     Indication: PROSTATIC DISORDER
  9. XIFAXAN [Suspect]
     Active Substance: RIFAXIMIN
     Indication: TREMOR
     Route: 048
     Dates: start: 201701
  10. XIFAXAN [Suspect]
     Active Substance: RIFAXIMIN
     Indication: WEIGHT DECREASED

REACTIONS (11)
  - Gastrointestinal haemorrhage [Unknown]
  - Asthenia [Unknown]
  - Ascites [Recovered/Resolved]
  - Death [Fatal]
  - Dyspnoea [Recovered/Resolved]
  - Unresponsive to stimuli [Unknown]
  - Vomiting [Recovering/Resolving]
  - Weight decreased [Not Recovered/Not Resolved]
  - Hepatic failure [Unknown]
  - Tremor [Recovering/Resolving]
  - Unevaluable event [Unknown]

NARRATIVE: CASE EVENT DATE: 2017
